FAERS Safety Report 7783145-8 (Version None)
Quarter: 2011Q3

REPORT INFORMATION
  Report Type: 
  Country: None (occurrence: None)
  Receive Date: 20110928
  Receipt Date: 20110921
  Transmission Date: 20111222
  Serious: Yes (Death, Hospitalization)
  Sender: FDA-Public Use
  Company Number: ES-UCBSA-041863

PATIENT
  Age: 61 Year
  Sex: Female

DRUGS (5)
  1. KEPPRA [Suspect]
     Route: 048
     Dates: start: 20110501, end: 20110722
  2. DEXAMETHASONE [Concomitant]
     Route: 048
     Dates: start: 20110501
  3. TEMOZOLOMIDE [Suspect]
     Route: 048
     Dates: start: 20110501, end: 20110708
  4. VALPROATE SODIUM [Suspect]
     Route: 048
     Dates: start: 20110501, end: 20110714
  5. OMEPRAZOLE [Concomitant]
     Route: 048
     Dates: start: 20110501

REACTIONS (2)
  - ASTROCYTOMA MALIGNANT [None]
  - CHOLESTASIS [None]
